FAERS Safety Report 20806148 (Version 1)
Quarter: 2022Q2

REPORT INFORMATION
  Report Type: Other
  Country: SK (occurrence: SK)
  Receive Date: 20220510
  Receipt Date: 20220510
  Transmission Date: 20220721
  Serious: Yes (Death, Life-Threatening)
  Sender: FDA-Public Use
  Company Number: SK-CELLTRION HEALTHCARE HUNGARY KFT-2022SK005176

PATIENT

DRUGS (16)
  1. RITUXIMAB [Suspect]
     Active Substance: RITUXIMAB
     Indication: Diffuse large B-cell lymphoma
     Dosage: 3 CYCLES OF THE R-CHOEP (2ND LINE)
     Route: 041
  2. RITUXIMAB [Suspect]
     Active Substance: RITUXIMAB
     Dosage: 3 CYCLES OF R-CHOP (1ST LINE)
     Route: 041
  3. RITUXIMAB [Suspect]
     Active Substance: RITUXIMAB
     Dosage: 2 CYCLES OF R-DHAP (3RD LINE)
     Route: 041
  4. RITUXIMAB [Suspect]
     Active Substance: RITUXIMAB
     Dosage: R-GDP REGIMEN (4TH LINE)
     Route: 041
  5. CYCLOPHOSPHAMIDE\DOXORUBICIN\PREDNISONE\RITUXIMAB\VINCRISTINE [Suspect]
     Active Substance: CYCLOPHOSPHAMIDE\DOXORUBICIN\PREDNISONE\RITUXIMAB\VINCRISTINE
     Indication: Diffuse large B-cell lymphoma
     Dosage: 3 CYCLES OF R-CHOP (1ST LINE)
     Route: 065
  6. CYCLOPHOSPHAMIDE\DOXORUBICIN\PREDNISONE\VINCRISTINE [Suspect]
     Active Substance: CYCLOPHOSPHAMIDE\DOXORUBICIN\PREDNISONE\VINCRISTINE
     Indication: Diffuse large B-cell lymphoma
     Dosage: 2 CYCLES OF CHOP (1ST LINE)
     Route: 065
  7. CISPLATIN [Suspect]
     Active Substance: CISPLATIN
     Indication: Diffuse large B-cell lymphoma
     Dosage: E R-GDP REGIMEN (4TH LINE)
     Route: 065
  8. CISPLATIN [Suspect]
     Active Substance: CISPLATIN
     Indication: Diffuse large B-cell lymphoma
     Dosage: 2 CYCLES OF R-DHAP (3RD LINE)
     Route: 065
  9. FLUDARABINE [Concomitant]
     Active Substance: FLUDARABINE PHOSPHATE
     Indication: Lymphodepletion
  10. KYMRIAH [Concomitant]
     Active Substance: TISAGENLECLEUCEL
  11. DEXAMETHASONE [Suspect]
     Active Substance: DEXAMETHASONE
  12. GEMCITABINE [Suspect]
     Active Substance: GEMCITABINE
  13. RITUXIMAB [Suspect]
     Active Substance: RITUXIMAB
  14. CYTARABINE [Suspect]
     Active Substance: CYTARABINE
  15. DEXAMETHASONE [Suspect]
     Active Substance: DEXAMETHASONE
  16. RITUXIMAB [Suspect]
     Active Substance: RITUXIMAB

REACTIONS (7)
  - Multiple organ dysfunction syndrome [Unknown]
  - Disease progression [Unknown]
  - Cytokine release syndrome [Unknown]
  - Diffuse large B-cell lymphoma refractory [Fatal]
  - Septic shock [Fatal]
  - Pulmonary embolism [Unknown]
  - Immune effector cell-associated neurotoxicity syndrome [Unknown]
